FAERS Safety Report 16898152 (Version 1)
Quarter: 2019Q4

REPORT INFORMATION
  Report Type: Spontaneous
  Country: US (occurrence: US)
  Receive Date: 20191009
  Receipt Date: 20191009
  Transmission Date: 20200122
  Serious: No
  Sender: FDA-Public Use
  Company Number: US-ELI_LILLY_AND_COMPANY-US201910000721

PATIENT
  Age: 14 Year

DRUGS (7)
  1. VITAMIN D3 [Concomitant]
     Active Substance: CHOLECALCIFEROL
     Indication: HYPERTHYROIDISM
  2. VITAMIN D3 [Concomitant]
     Active Substance: CHOLECALCIFEROL
     Indication: GENE MUTATION
  3. CALCIUM CARBONATE. [Concomitant]
     Active Substance: CALCIUM CARBONATE
     Indication: PRODUCT USED FOR UNKNOWN INDICATION
     Dosage: 2 DOSAGE FORM, TID
  4. FORTEO [Suspect]
     Active Substance: TERIPARATIDE
     Indication: GENE MUTATION
  5. FORTEO [Suspect]
     Active Substance: TERIPARATIDE
     Indication: HYPOTHYROIDISM
  6. VITAMIN D3 [Concomitant]
     Active Substance: CHOLECALCIFEROL
     Indication: HYPOCALCAEMIA
     Dosage: 2 DOSAGE FORM, MONTHLY (1/M)
  7. FORTEO [Suspect]
     Active Substance: TERIPARATIDE
     Indication: HYPOCALCAEMIA
     Dosage: UNK UNK, UNKNOWN
     Route: 058

REACTIONS (5)
  - Wrong technique in product usage process [Unknown]
  - Blood calcium abnormal [Unknown]
  - Off label use [Unknown]
  - Inappropriate schedule of product administration [Unknown]
  - Overdose [Unknown]
